FAERS Safety Report 9094148 (Version 1)
Quarter: 2013Q3

REPORT INFORMATION
  Report Type: Spontaneous
  Country: US (occurrence: None)
  Receive Date: 20130214
  Receipt Date: 20130214
  Transmission Date: 20140515
  Serious: Yes (Hospitalization)
  Sender: FDA-Public Use
  Company Number: None

PATIENT
  Age: 79 Year
  Sex: Male
  Weight: 88.95 kg

DRUGS (9)
  1. SATRAPLATIN [Suspect]
     Indication: PROSTATE CANCER
     Dosage: 120 MG PO DAILY,5DAYS ON 23 DAYS OFF, Q28 DAYS
     Route: 048
     Dates: start: 20121226, end: 20131230
  2. FOLIC ACID [Concomitant]
  3. MULTIVITAMINS [Concomitant]
  4. LEUPROLIDE [Concomitant]
  5. METFORMIN [Concomitant]
  6. GLIPIZIDE [Concomitant]
  7. VITAMIN D [Concomitant]
  8. CALCIUM CARBONATE/VITAMIN D3 [Concomitant]
  9. PREDNISONE [Concomitant]

REACTIONS (9)
  - Febrile neutropenia [None]
  - Anaemia [None]
  - Pyrexia [None]
  - Flank pain [None]
  - Chills [None]
  - Malaise [None]
  - Fatigue [None]
  - Decreased appetite [None]
  - Cough [None]
